FAERS Safety Report 22315590 (Version 1)
Quarter: 2023Q2

REPORT INFORMATION
  Report Type: Spontaneous
  Country: US (occurrence: US)
  Receive Date: 20230512
  Receipt Date: 20230512
  Transmission Date: 20230722
  Serious: No
  Sender: FDA-Public Use
  Company Number: US-PFIZER INC-PV202300083524

PATIENT
  Age: 76 Year
  Sex: Female

DRUGS (1)
  1. IBRANCE [Suspect]
     Active Substance: PALBOCICLIB
     Indication: Breast cancer

REACTIONS (6)
  - Cough [Not Recovered/Not Resolved]
  - Alopecia [Unknown]
  - Hair colour changes [Unknown]
  - Pollakiuria [Unknown]
  - Insomnia [Unknown]
  - Fatigue [Unknown]
